FAERS Safety Report 21923567 (Version 2)
Quarter: 2024Q2

REPORT INFORMATION
  Report Type: Spontaneous
  Country: TH (occurrence: TH)
  Receive Date: 20230130
  Receipt Date: 20240412
  Transmission Date: 20240715
  Serious: Yes (Other)
  Sender: FDA-Public Use
  Company Number: None

PATIENT
  Age: 62 Year
  Sex: Female

DRUGS (15)
  1. TACROLIMUS [Suspect]
     Active Substance: TACROLIMUS
     Indication: Renal transplant
     Dosage: UNK
     Route: 065
  2. TACROLIMUS [Suspect]
     Active Substance: TACROLIMUS
     Indication: Immunosuppression
  3. PREDNISOLONE [Suspect]
     Active Substance: PREDNISOLONE
     Indication: Renal transplant
     Dosage: UNK
     Route: 065
  4. PREDNISOLONE [Suspect]
     Active Substance: PREDNISOLONE
     Indication: Immunosuppression
     Dosage: UNK (LOW DOSE)
     Route: 065
  5. MYCOPHENOLIC ACID [Suspect]
     Active Substance: MYCOPHENOLIC ACID
     Indication: Immunosuppression
     Dosage: UNK
     Route: 065
  6. MYCOPHENOLIC ACID [Suspect]
     Active Substance: MYCOPHENOLIC ACID
     Indication: Renal transplant
  7. METHYLPREDNISOLONE [Suspect]
     Active Substance: METHYLPREDNISOLONE
     Indication: Transplant rejection
     Dosage: 2000 MILLIGRAM
     Route: 042
  8. METHYLPREDNISOLONE [Suspect]
     Active Substance: METHYLPREDNISOLONE
     Indication: Transplant rejection
     Dosage: 2000 MILLIGRAM
     Route: 042
  9. METHYLPREDNISOLONE [Suspect]
     Active Substance: METHYLPREDNISOLONE
     Dosage: 2000 MILLIGRAM
     Route: 042
  10. BASILIXIMAB [Concomitant]
     Active Substance: BASILIXIMAB
     Indication: Immunosuppression
     Dosage: UNK (INDUCTION THERAPY)
     Route: 065
  11. BASILIXIMAB [Concomitant]
     Active Substance: BASILIXIMAB
     Indication: Renal transplant
  12. GANCICLOVIR [Concomitant]
     Active Substance: GANCICLOVIR
     Indication: Cytomegalovirus infection
     Dosage: UNK
     Route: 065
  13. GANCICLOVIR [Concomitant]
     Active Substance: GANCICLOVIR
     Indication: Pancytopenia
     Dosage: UNK
     Route: 065
  14. IMMUNGLOBULIN [Concomitant]
     Indication: Transplant rejection
     Dosage: 115 GRAM
     Route: 042
  15. IMMUNGLOBULIN [Concomitant]
     Indication: Transplant rejection
     Dosage: 115 GRAM
     Route: 042

REACTIONS (6)
  - Ureteric obstruction [Recovered/Resolved]
  - Hydronephrosis [Recovered/Resolved]
  - Ureteric stenosis [Recovered/Resolved]
  - Polyomavirus-associated nephropathy [Recovered/Resolved]
  - Cytomegalovirus infection [Unknown]
  - Transplant rejection [Unknown]
